FAERS Safety Report 4975039-8 (Version None)
Quarter: 2006Q2

REPORT INFORMATION
  Report Type: 
  Country: None (occurrence: None)
  Receive Date: 20060414
  Receipt Date: 20060414
  Transmission Date: 20061013
  Serious: Yes (Life-Threatening, Hospitalization)
  Sender: FDA-Public Use
  Company Number: None

PATIENT
  Sex: Male

DRUGS (1)
  1. TOBRAMYCIN [Suspect]
     Indication: BACTERIAL INFECTION
     Dosage: 250 MG  Q8H   IV
     Route: 042
     Dates: start: 20060306, end: 20060310

REACTIONS (1)
  - RENAL FAILURE ACUTE [None]
